FAERS Safety Report 9027797 (Version 1)
Quarter: 2013Q1

REPORT INFORMATION
  Report Type: Spontaneous
  Country: US (occurrence: US)
  Receive Date: 20130124
  Receipt Date: 20130124
  Transmission Date: 20140127
  Serious: Yes (Other)
  Sender: FDA-Public Use
  Company Number: US-JNJFOC-20121207241

PATIENT
  Sex: Male
  Weight: 104.33 kg

DRUGS (7)
  1. REMICADE [Suspect]
     Indication: CROHN^S DISEASE
     Route: 065
     Dates: start: 20121108
  2. REMICADE [Suspect]
     Indication: CROHN^S DISEASE
     Route: 065
     Dates: start: 20010723
  3. IMURAN [Concomitant]
     Indication: CROHN^S DISEASE
     Dates: start: 2001
  4. FOLIC ACID [Concomitant]
     Indication: NUTRITIONAL SUPPLEMENTATION
     Dates: start: 2001
  5. FERROUS SULFATE [Concomitant]
     Indication: NUTRITIONAL SUPPLEMENTATION
  6. VITAMIN B-12 [Concomitant]
     Indication: NUTRITIONAL SUPPLEMENTATION
  7. MULTIVIT [Concomitant]
     Indication: NUTRITIONAL SUPPLEMENTATION

REACTIONS (7)
  - Mesothelioma [Not Recovered/Not Resolved]
  - Pleural effusion [Not Recovered/Not Resolved]
  - Renal failure [Not Recovered/Not Resolved]
  - Cellulitis [Not Recovered/Not Resolved]
  - Anaemia [Unknown]
  - Malnutrition [Unknown]
  - Anxiety [Not Recovered/Not Resolved]
